FAERS Safety Report 20497234 (Version 2)
Quarter: 2022Q4

REPORT INFORMATION
  Report Type: Report from Study
  Country: US (occurrence: US)
  Receive Date: 20220221
  Receipt Date: 20221027
  Transmission Date: 20230112
  Serious: Yes (Other)
  Sender: FDA-Public Use
  Company Number: US-ORGANON-O2202USA001002

PATIENT
  Sex: Female
  Weight: 74.842 kg

DRUGS (8)
  1. FORMOTEROL FUMARATE\MOMETASONE FUROATE [Suspect]
     Active Substance: FORMOTEROL FUMARATE\MOMETASONE FUROATE
     Indication: Asthma
     Dosage: 2 DOSAGE FORM, BID (CONCENTRATION: 100/5 (UNIT NOT REPORTED))
     Dates: start: 20220114, end: 20220208
  2. ALBUTEROL [Concomitant]
     Active Substance: ALBUTEROL
     Dosage: METERED DOSE INHALER (MDI),  PRN
     Dates: start: 20200303
  3. ALBUTEROL [Concomitant]
     Active Substance: ALBUTEROL
     Dosage: 2.5 MG/3 ML, NEBULIZED, PRN
     Dates: start: 20200303
  4. HYDROCORTISONE ACETATE [Concomitant]
     Active Substance: HYDROCORTISONE ACETATE
     Dosage: UNK
     Route: 061
     Dates: start: 20200717
  5. LEVONORGESTREL AND ETHINYL ESTRADIOL [Concomitant]
     Active Substance: ETHINYL ESTRADIOL\LEVONORGESTREL
     Dosage: 0.1- 20 MG-MCG DAILY
     Dates: start: 20201104, end: 20220208
  6. CETIRIZINE HYDROCHLORIDE [Concomitant]
     Active Substance: CETIRIZINE HYDROCHLORIDE
     Dosage: 20 MILLIGRAM, QD
     Dates: start: 20200717
  7. FLUTICASONE [Concomitant]
     Active Substance: FLUTICASONE
     Dosage: NASAL, PRN
     Dates: start: 20181013
  8. ECONAZOLE NITRATE [Concomitant]
     Active Substance: ECONAZOLE NITRATE
     Dosage: UNK, PRN
     Dates: start: 20200717

REACTIONS (2)
  - Maternal exposure during pregnancy [Unknown]
  - Product dose omission issue [Unknown]

NARRATIVE: CASE EVENT DATE: 20220101
